FAERS Safety Report 17200023 (Version 1)
Quarter: 2019Q4

REPORT INFORMATION
  Report Type: Spontaneous
  Country: FR (occurrence: FR)
  Receive Date: 20191226
  Receipt Date: 20191226
  Transmission Date: 20200122
  Serious: Yes (Death, Hospitalization)
  Sender: FDA-Public Use
  Company Number: FR-TEVA-2019-FR-1156969

PATIENT
  Age: 68 Year
  Sex: Female
  Weight: 84 kg

DRUGS (26)
  1. REMICADE [Suspect]
     Active Substance: INFLIXIMAB
     Dosage: 420 MG, EVERY 4 WEEKS
     Route: 042
     Dates: start: 20150618, end: 20150716
  2. ACITRETIN. [Suspect]
     Active Substance: ACITRETIN
     Indication: PRODUCT USED FOR UNKNOWN INDICATION
     Dosage: 25 MG, QD
     Route: 048
     Dates: start: 20160704, end: 20160909
  3. ACITRETIN. [Suspect]
     Active Substance: ACITRETIN
     Dosage: 10 MG, QD (10 MG, 1X/DAY)
     Route: 048
     Dates: start: 20170728, end: 20180126
  4. ENBREL [Suspect]
     Active Substance: ETANERCEPT
     Indication: PSORIASIS
     Dosage: 50 MG, QW (50 MG, WEEKLY)
     Route: 058
     Dates: start: 20141002, end: 20150323
  5. REMICADE [Suspect]
     Active Substance: INFLIXIMAB
     Dosage: 420 MG, EVERY 2 WEEKS
     Route: 042
     Dates: start: 20150605, end: 20150718
  6. ACITRETIN. [Suspect]
     Active Substance: ACITRETIN
     Dosage: 20 MG, QD (20 MG, 1X/DAY)
     Route: 048
     Dates: start: 20180126, end: 20180323
  7. LOCAPRED [Concomitant]
     Active Substance: DESONIDE
     Indication: PRODUCT USED FOR UNKNOWN INDICATION
     Dosage: UNK
     Route: 065
     Dates: start: 20180323
  8. COLD CREAM [Concomitant]
     Indication: PRODUCT USED FOR UNKNOWN INDICATION
     Dosage: UNK
     Route: 065
     Dates: start: 20150408
  9. STRESAM [Concomitant]
     Active Substance: ETIFOXINE
     Indication: PRODUCT USED FOR UNKNOWN INDICATION
     Dosage: UNK
     Route: 065
     Dates: start: 20180123
  10. KARDEGIC [Concomitant]
     Active Substance: ASPIRIN DL-LYSINE
     Indication: PRODUCT USED FOR UNKNOWN INDICATION
     Dosage: 75 MG, QD (75 MG, 1X/DAY)
     Route: 048
     Dates: start: 20130620
  11. REMICADE [Suspect]
     Active Substance: INFLIXIMAB
     Dosage: 400 MG, EVERY 8 WEEKS
     Route: 042
     Dates: start: 20160704, end: 20160704
  12. REMICADE [Suspect]
     Active Substance: INFLIXIMAB
     Dosage: 415 MG, EVERY 8 WEEKS
     Route: 065
     Dates: start: 20160202, end: 20160325
  13. STELARA [Suspect]
     Active Substance: USTEKINUMAB
     Dosage: 90 MG, CYCLIC (90 MG, CYCLIC EVERY 4 WEEKS)
     Route: 058
     Dates: start: 20170728, end: 20170828
  14. DAIVOBET [Concomitant]
     Active Substance: BETAMETHASONE DIPROPIONATE\CALCIPOTRIENE
     Indication: PRODUCT USED FOR UNKNOWN INDICATION
     Dosage: UNK
     Route: 065
     Dates: start: 20151126
  15. DERMOVAL [Concomitant]
     Indication: PRODUCT USED FOR UNKNOWN INDICATION
     Dosage: UNK
     Route: 065
     Dates: start: 20150408
  16. FLECAINE [Concomitant]
     Active Substance: FLECAINIDE
     Indication: PRODUCT USED FOR UNKNOWN INDICATION
     Dosage: UNK
     Route: 065
     Dates: start: 20170728
  17. METHOTREXATE SODIUM. [Suspect]
     Active Substance: METHOTREXATE SODIUM
     Indication: PRODUCT USED FOR UNKNOWN INDICATION
     Dosage: UNK
     Route: 065
     Dates: start: 20180717, end: 20181009
  18. STELARA [Suspect]
     Active Substance: USTEKINUMAB
     Indication: PRODUCT USED FOR UNKNOWN INDICATION
     Dosage: 90 MG, CYCLIC (90 MG, CYCLIC EVERY 10 WEEKS)
     Route: 058
     Dates: start: 20171027, end: 20180126
  19. GLYCEROTONE [Concomitant]
     Indication: PRODUCT USED FOR UNKNOWN INDICATION
     Dosage: UNK
     Route: 065
     Dates: start: 20180323
  20. REMICADE [Suspect]
     Active Substance: INFLIXIMAB
     Dosage: 420 MG, EVERY 8 WEEKS
     Route: 042
     Dates: start: 20150816, end: 20151126
  21. ECO [Concomitant]
     Indication: PRODUCT USED FOR UNKNOWN INDICATION
     Dosage: UNK
     Route: 065
     Dates: start: 20180323
  22. CYCLOSPORINE. [Suspect]
     Active Substance: CYCLOSPORINE
     Indication: PRODUCT USED FOR UNKNOWN INDICATION
     Dosage: 15 MG, QW (15 MG, WEEKLY)
     Route: 058
     Dates: start: 20180323
  23. STELARA [Suspect]
     Active Substance: USTEKINUMAB
     Dosage: 90 MG, CYCLIC (90 MG, CYCLIC EVERY 8 WEEKS)
     Route: 058
     Dates: start: 20180126, end: 20180323
  24. STELARA [Suspect]
     Active Substance: USTEKINUMAB
     Dosage: 90 MG, CYCLIC (90 MG, CYCLIC EVERY 12 WEEKS)
     Route: 058
     Dates: start: 20170828, end: 20171027
  25. NERISONE [Concomitant]
     Active Substance: DIFLUCORTOLONE VALERATE
     Dosage: UNK
     Dates: start: 20180323, end: 20180423
  26. COLD CREAM NATUREL [Concomitant]
     Dosage: UNK
     Dates: start: 20180323, end: 20180423

REACTIONS (7)
  - Pruritus [Fatal]
  - Drug ineffective [Fatal]
  - Rectal haemorrhage [Fatal]
  - Tooth abscess [Fatal]
  - Cutaneous T-cell lymphoma [Fatal]
  - Dermatitis exfoliative generalised [Fatal]
  - Psoriasis [Fatal]

NARRATIVE: CASE EVENT DATE: 20150330
